FAERS Safety Report 13071617 (Version 1)
Quarter: 2016Q4

REPORT INFORMATION
  Report Type: Spontaneous
  Country: US (occurrence: US)
  Receive Date: 20161228
  Receipt Date: 20161228
  Transmission Date: 20170207
  Serious: Yes (Death)
  Sender: FDA-Public Use
  Company Number: None

PATIENT
  Age: 66 Year
  Sex: Male

DRUGS (1)
  1. SILDENAFIL 20MG TAB [Suspect]
     Active Substance: SILDENAFIL

REACTIONS (1)
  - Death [None]

NARRATIVE: CASE EVENT DATE: 20161228
